FAERS Safety Report 5532293-1 (Version None)
Quarter: 2007Q4

REPORT INFORMATION
  Report Type: 
  Country: None (occurrence: None)
  Receive Date: 20071203
  Receipt Date: 20071120
  Transmission Date: 20080405
  Serious: Yes (Hospitalization)
  Sender: FDA-Public Use
  Company Number: US-ELI_LILLY_AND_COMPANY-US200711005086

PATIENT
  Sex: Female

DRUGS (3)
  1. FORTEO [Suspect]
     Indication: OSTEOPOROSIS
     Dosage: UNK, UNK
     Dates: start: 20070901, end: 20071101
  2. FORTEO [Suspect]
     Dates: start: 20071101
  3. NEXIUM [Concomitant]

REACTIONS (4)
  - ARTHRALGIA [None]
  - COLONIC POLYP [None]
  - PAIN IN EXTREMITY [None]
  - PROCEDURAL PAIN [None]
